FAERS Safety Report 7963988-8 (Version None)
Quarter: 2011Q4

REPORT INFORMATION
  Report Type: 
  Country: None (occurrence: None)
  Receive Date: 20111208
  Receipt Date: 20111202
  Transmission Date: 20120403
  Serious: No
  Sender: FDA-Public Use
  Company Number: US-BAYER-2011-116360

PATIENT
  Sex: Female

DRUGS (3)
  1. BETASERON [Suspect]
     Dosage: 3 MG
  2. BACLOFEN [Concomitant]
     Dosage: 10 MG
  3. ZANAFLEX [Concomitant]
     Dosage: 2 MG

REACTIONS (4)
  - PYREXIA [None]
  - HEADACHE [None]
  - CHILLS [None]
  - URTICARIA [None]
